FAERS Safety Report 8425415-6 (Version None)
Quarter: 2012Q2

REPORT INFORMATION
  Report Type: 
  Country: None (occurrence: None)
  Receive Date: 20120604
  Receipt Date: 20120523
  Transmission Date: 20120825
  Serious: Yes (Other)
  Sender: FDA-Public Use
  Company Number: AUR-APL-2012-02408

PATIENT
  Age: 38 Year
  Sex: Female
  Weight: 107 kg

DRUGS (4)
  1. FOLSAURE (FOLIC ACID) [Concomitant]
  2. METHYLDOPA [Concomitant]
  3. METFFORMIN HYDROCHLORIDE [Suspect]
     Indication: INSULIN RESISTANCE
     Dosage: 1500;1000 MG, DAILY UNTIL GESTATION WEEK 18), ORAL
     Route: 048
     Dates: start: 20091015
  4. METFFORMIN HYDROCHLORIDE [Suspect]
     Indication: INSULIN RESISTANCE
     Dosage: 1500;1000 MG, DAILY UNTIL GESTATION WEEK 18), ORAL
     Route: 048
     Dates: end: 20100629

REACTIONS (8)
  - PRE-ECLAMPSIA [None]
  - CEPHALO-PELVIC DISPROPORTION [None]
  - MATERNAL EXPOSURE DURING PREGNANCY [None]
  - PREMATURE DELIVERY [None]
  - CAESAREAN SECTION [None]
  - PREGNANCY [None]
  - OLIGOHYDRAMNIOS [None]
  - OBSTRUCTED LABOUR [None]
